FAERS Safety Report 4657632-5 (Version None)
Quarter: 2005Q2

REPORT INFORMATION
  Report Type: 
  Country: None (occurrence: None)
  Receive Date: 20050510
  Receipt Date: 20050506
  Transmission Date: 20051028
  Serious: Yes (Death)
  Sender: FDA-Public Use
  Company Number: DE-BRISTOL-MYERS SQUIBB COMPANY-12958849

PATIENT
  Age: 60 Year
  Sex: Male

DRUGS (6)
  1. CISPLATIN [Suspect]
     Indication: SMALL CELL LUNG CANCER STAGE UNSPECIFIED
     Dosage: START DATE:  13-FEB-2005
     Route: 042
     Dates: start: 20050312, end: 20050312
  2. TOPOTECAN HCL [Suspect]
     Indication: SMALL CELL LUNG CANCER STAGE UNSPECIFIED
     Dosage: START DATE:  09-FEB-2005 TO 13-FEB-2005
     Route: 042
     Dates: start: 20050308, end: 20050312
  3. MORPHINE SULFATE [Concomitant]
  4. IBUPROFEN [Concomitant]
  5. TRAMADOL HCL [Concomitant]
  6. RED BLOOD CELLS [Concomitant]

REACTIONS (2)
  - CARDIAC FAILURE [None]
  - CIRCULATORY COLLAPSE [None]
